FAERS Safety Report 23139375 (Version 2)
Quarter: 2023Q4

REPORT INFORMATION
  Report Type: Spontaneous
  Country: GB (occurrence: GB)
  Receive Date: 20231102
  Receipt Date: 20231116
  Transmission Date: 20240110
  Serious: Yes (Other)
  Sender: FDA-Public Use
  Company Number: GB-002147023-NVSC2023GB228404

PATIENT
  Age: 50 Year
  Sex: Female

DRUGS (2)
  1. TEGRETOL [Suspect]
     Active Substance: CARBAMAZEPINE
     Indication: Seizure
     Dosage: 2 DOSAGE FORM, QD (2 X 200MG TABLETS A DAY FOR 10 YEARS)
     Route: 048
  2. TEGRETOL [Suspect]
     Active Substance: CARBAMAZEPINE
     Indication: Seizure
     Dosage: 10 ML (LIQUID)
     Route: 048

REACTIONS (6)
  - Frontotemporal dementia [Unknown]
  - Seizure [Unknown]
  - Product use issue [Unknown]
  - Incorrect product formulation administered [Unknown]
  - Incorrect dose administered [Unknown]
  - Product availability issue [Unknown]
